FAERS Safety Report 19242674 (Version 1)
Quarter: 2021Q2

REPORT INFORMATION
  Report Type: Report from Study
  Country: ES (occurrence: ES)
  Receive Date: 20210511
  Receipt Date: 20210511
  Transmission Date: 20210717
  Serious: Yes (Hospitalization)
  Sender: FDA-Public Use
  Company Number: ES-VIIV HEALTHCARE LIMITED-ES2021EME101190

PATIENT
  Sex: Male

DRUGS (1)
  1. DOLUTEGRAVIR + RILPIVIRINE [Suspect]
     Active Substance: DOLUTEGRAVIR SODIUM\RILPIVIRINE HYDROCHLORIDE
     Indication: HIV INFECTION
     Dosage: UNK

REACTIONS (1)
  - Oesophagitis [Unknown]
